FAERS Safety Report 6653361-7 (Version None)
Quarter: 2010Q1

REPORT INFORMATION
  Report Type: 
  Country: None (occurrence: None)
  Receive Date: 20100326
  Receipt Date: 20100315
  Transmission Date: 20100710
  Serious: Yes (Other)
  Sender: FDA-Public Use
  Company Number: PHEH2010US00736

PATIENT
  Sex: Female

DRUGS (2)
  1. GLEEVEC [Suspect]
     Dosage: 400 MG, QD
     Route: 048
  2. GLEEVEC [Suspect]
     Dosage: 600 MG, QD
     Route: 048

REACTIONS (11)
  - BREAST CANCER [None]
  - CHEST PAIN [None]
  - CHRONIC MYELOID LEUKAEMIA [None]
  - EYE SWELLING [None]
  - FALL [None]
  - INFLAMMATION [None]
  - JOINT DISLOCATION [None]
  - MUSCULOSKELETAL PAIN [None]
  - NEOPLASM MALIGNANT [None]
  - OEDEMA PERIPHERAL [None]
  - UTERINE CANCER [None]
